FAERS Safety Report 7033635-0 (Version None)
Quarter: 2010Q4

REPORT INFORMATION
  Report Type: 
  Country: None (occurrence: None)
  Receive Date: 20101005
  Receipt Date: 20100922
  Transmission Date: 20110411
  Serious: Yes (Hospitalization, Other)
  Sender: FDA-Public Use
  Company Number: 2010-2758

PATIENT
  Age: 68 Year
  Sex: Male

DRUGS (10)
  1. APO-GO AMPOULES (APO-GO) (APOMORPHINE HYDROCHLORIDE) (APOMORPHINE HYDR [Suspect]
     Indication: PARKINSON'S DISEASE
     Dosage: (6 MG, 1 IN 1 HR), SUBCUTANEOUS
     Route: 058
     Dates: start: 20100308
  2. GLUCOPHAGE [Concomitant]
  3. ASPIRIN [Concomitant]
  4. RABEPRAZOLE SODIUM [Concomitant]
  5. GABAPENTIN [Concomitant]
  6. NOVOFORM (REPAGLINIDE) [Concomitant]
  7. PRAVASTATIN [Concomitant]
  8. STALEVO (STALEVO) [Concomitant]
  9. AZILECT [Concomitant]
  10. SINEMET CR [Concomitant]

REACTIONS (1)
  - ERECTION INCREASED [None]
